FAERS Safety Report 9934981 (Version 4)
Quarter: 2015Q2

REPORT INFORMATION
  Report Type: Spontaneous
  Country: US (occurrence: US)
  Receive Date: 20140228
  Receipt Date: 20150601
  Transmission Date: 20150821
  Serious: Yes (Death, Life-Threatening, Hospitalization, Disabling, Other)
  Sender: FDA-Public Use
  Company Number: US-MERCK-1402USA013691

PATIENT
  Sex: Male
  Weight: 102.49 kg

DRUGS (1)
  1. JANUVIA [Suspect]
     Active Substance: SITAGLIPTIN PHOSPHATE
     Indication: TYPE 2 DIABETES MELLITUS
     Dosage: 100 MG, QD
     Route: 048
     Dates: start: 20110430, end: 20120923

REACTIONS (44)
  - Localised intraabdominal fluid collection [Recovering/Resolving]
  - Angle closure glaucoma [Unknown]
  - Pancreatitis necrotising [Unknown]
  - Gastrooesophageal reflux disease [Unknown]
  - Ascites [Unknown]
  - Radiotherapy [Unknown]
  - Malignant neoplasm of ampulla of Vater [Unknown]
  - Lymphadenectomy [Unknown]
  - Abdominal cavity drainage [Unknown]
  - Fascial rupture [Recovering/Resolving]
  - Cholecystitis chronic [Recovered/Resolved]
  - Aortic arteriosclerosis [Unknown]
  - Rash [Unknown]
  - Metastases to lymph nodes [Unknown]
  - Pancreatitis chronic [Not Recovered/Not Resolved]
  - Metastases to lung [Unknown]
  - Hypophosphataemia [Unknown]
  - Spinal osteoarthritis [Unknown]
  - Device occlusion [Unknown]
  - Bile duct stent insertion [Recovering/Resolving]
  - Pulmonary embolism [Unknown]
  - Metastases to liver [Unknown]
  - Death [Fatal]
  - Endoscopic ultrasound abnormal [Unknown]
  - Dry eye [Unknown]
  - Incision site haemorrhage [Unknown]
  - Staphylococcal bacteraemia [Recovering/Resolving]
  - Postoperative wound infection [Recovering/Resolving]
  - Cholelithiasis [Unknown]
  - Micturition urgency [Unknown]
  - Chronic gastritis [Not Recovered/Not Resolved]
  - Nephrolithiasis [Unknown]
  - Benign prostatic hyperplasia [Unknown]
  - Prostatic calcification [Unknown]
  - Pancreaticoduodenectomy [Unknown]
  - Cholecystectomy [Unknown]
  - Jejunostomy [Unknown]
  - Plantar fasciitis [Unknown]
  - Splenic granuloma [Unknown]
  - Hypokalaemia [Unknown]
  - Thyroid neoplasm [Unknown]
  - Eczema [Unknown]
  - Tympanic membrane perforation [Unknown]
  - Bile duct stent insertion [Unknown]

NARRATIVE: CASE EVENT DATE: 20120307
